FAERS Safety Report 4317684-9 (Version None)
Quarter: 2004Q1

REPORT INFORMATION
  Report Type: 
  Country: None (occurrence: None)
  Receive Date: 20040315
  Receipt Date: 20040220
  Transmission Date: 20041129
  Serious: Yes (Hospitalization)
  Sender: FDA-Public Use
  Company Number: FR-BRISTOL-MYERS SQUIBB COMPANY-12512919

PATIENT
  Age: 67 Year
  Sex: Male
  Weight: 70 kg

DRUGS (2)
  1. BRISTOPEN INJ 1 G [Suspect]
     Indication: ENDOCARDITIS
     Route: 042
     Dates: start: 20040113, end: 20040128
  2. GENTAMICIN [Suspect]
     Indication: ENDOCARDITIS
     Route: 042
     Dates: start: 20040113, end: 20040128

REACTIONS (5)
  - ANAEMIA [None]
  - DUODENAL ULCER [None]
  - DUODENAL ULCER HAEMORRHAGE [None]
  - HAEMATURIA [None]
  - THROMBOCYTOPENIA [None]
